FAERS Safety Report 8023960 (Version 5)
Quarter: 2012Q4

REPORT INFORMATION
  Report Type: Report from Study
  Country: JP (occurrence: JP)
  Receive Date: 20110706
  Receipt Date: 20121031
  Transmission Date: 20130627
  Serious: Yes (Hospitalization, Other)
  Sender: FDA-Public Use
  Company Number: PHHY2011JP56384

PATIENT
  Age: 46 Year
  Sex: Male

DRUGS (5)
  1. AFINITOR [Suspect]
     Indication: METASTATIC RENAL CELL CARCINOMA
     Dosage: 10 mg, daily
     Route: 048
     Dates: start: 20110208, end: 20111004
  2. APHTASOLON [Concomitant]
     Dates: start: 20110222, end: 20110308
  3. HUMALOG [Concomitant]
     Dosage: 60 DF, UNK
     Route: 058
  4. LEVEMIR [Concomitant]
     Dosage: 24 DF, UNK
     Route: 058
  5. BLOPRESS [Concomitant]
     Dosage: 8 mg, UNK
     Route: 048
     Dates: start: 20110419

REACTIONS (7)
  - Neoplasm progression [Not Recovered/Not Resolved]
  - Malignant neoplasm progression [Not Recovered/Not Resolved]
  - C-reactive protein increased [Unknown]
  - Dyslipidaemia [Recovering/Resolving]
  - Anaemia [Recovering/Resolving]
  - Hypertension [Recovered/Resolved]
  - Hyperglycaemia [Recovered/Resolved]
